FAERS Safety Report 13260427 (Version 1)
Quarter: 2017Q1

REPORT INFORMATION
  Report Type: Spontaneous
  Country: US (occurrence: US)
  Receive Date: 20170222
  Receipt Date: 20170222
  Transmission Date: 20170428
  Serious: No
  Sender: FDA-Public Use
  Company Number: US-BAYER-2017-034966

PATIENT
  Age: 90 Year
  Sex: Male
  Weight: 77 kg

DRUGS (1)
  1. MIRALAX [Suspect]
     Active Substance: POLYETHYLENE GLYCOL 3350
     Indication: GASTROINTESTINAL DISORDER
     Dosage: DIFFERENT AMOUNTS, QD,FOR 8 1/2 TO 9 YEARS
     Route: 048
     Dates: end: 20170221

REACTIONS (3)
  - Product use issue [Unknown]
  - Lip dry [Recovered/Resolved]
  - Dysgeusia [Recovered/Resolved]
